FAERS Safety Report 13549529 (Version 11)
Quarter: 2023Q1

REPORT INFORMATION
  Report Type: Report from Study
  Country: DE (occurrence: None)
  Receive Date: 20170516
  Receipt Date: 20230223
  Transmission Date: 20230418
  Serious: Yes (Hospitalization)
  Sender: FDA-Public Use
  Company Number: DE-ROCHE-1932235

PATIENT
  Age: 72 Year
  Sex: Male
  Weight: 87 kg

DRUGS (12)
  1. OBINUTUZUMAB [Suspect]
     Active Substance: OBINUTUZUMAB
     Indication: Follicular lymphoma
     Dosage: THE MOST RECENT DOSE OF OBINUTUZUMAB WAS ADMINISTERED ON 25/APR/2017
     Route: 042
     Dates: start: 20160602, end: 20170425
  2. IBRUTINIB [Suspect]
     Active Substance: IBRUTINIB
     Indication: Follicular lymphoma
     Dosage: THE MOST RECENT DOSE OF IBRUTINIB WAS ADMINISTERED ON 03/MAY/2017
     Route: 048
     Dates: start: 20160602, end: 20170503
  3. IBRUTINIB [Suspect]
     Active Substance: IBRUTINIB
     Indication: Follicular lymphoma
  4. RIVAROXABAN [Concomitant]
     Active Substance: RIVAROXABAN
     Indication: Atrial fibrillation
     Dates: start: 201702
  5. AMOXICILLIN [Concomitant]
     Active Substance: AMOXICILLIN
     Indication: Pharyngitis
     Dates: start: 20161224
  6. OMEPRAZOLE [Concomitant]
     Active Substance: OMEPRAZOLE
     Indication: Gastritis
     Dates: start: 201608
  7. ACETAMINOPHEN [Concomitant]
     Active Substance: ACETAMINOPHEN
     Indication: Premedication
     Dates: start: 20160602
  8. RANITIDINE HYDROCHLORIDE [Concomitant]
     Active Substance: RANITIDINE HYDROCHLORIDE
     Indication: Premedication
     Dates: start: 20160602
  9. CLEMASTINE FUMARATE [Concomitant]
     Active Substance: CLEMASTINE FUMARATE
     Indication: Premedication
     Dates: start: 20160602
  10. METOPROLOL SUCCINATE [Concomitant]
     Active Substance: METOPROLOL SUCCINATE
     Indication: Hypertension
     Dates: start: 20160517
  11. RAMIPRIL [Concomitant]
     Active Substance: RAMIPRIL
     Indication: Hypertension
     Dates: start: 2010
  12. TAMSULOSIN HYDROCHLORIDE [Concomitant]
     Active Substance: TAMSULOSIN HYDROCHLORIDE
     Indication: Benign prostatic hyperplasia
     Dates: start: 2006

REACTIONS (1)
  - Hypertensive urgency [Recovered/Resolved]

NARRATIVE: CASE EVENT DATE: 20170430
